FAERS Safety Report 5115238-8 (Version None)
Quarter: 2006Q3

REPORT INFORMATION
  Report Type: 
  Country: None (occurrence: None)
  Receive Date: 20060921
  Receipt Date: 20060905
  Transmission Date: 20061208
  Serious: Yes (Death)
  Sender: FDA-Public Use
  Company Number: L06-SWE-03356-00

PATIENT
  Age: 34 Year
  Sex: Male

DRUGS (2)
  1. CARBAMAZEPINE [Suspect]
     Indication: AFFECTIVE DISORDER
  2. LITHIUM [Concomitant]

REACTIONS (11)
  - ANOXIC ENCEPHALOPATHY [None]
  - ASPIRATION [None]
  - ATRIAL FIBRILLATION [None]
  - COMA [None]
  - CONVULSION [None]
  - ELECTROCARDIOGRAM QRS COMPLEX PROLONGED [None]
  - LOSS OF CONSCIOUSNESS [None]
  - POISONING DELIBERATE [None]
  - PULSE ABSENT [None]
  - RESPIRATORY FAILURE [None]
  - VENTRICULAR FIBRILLATION [None]
